FAERS Safety Report 26132060 (Version 1)
Quarter: 2025Q4

REPORT INFORMATION
  Report Type: Spontaneous
  Country: AU (occurrence: AU)
  Receive Date: 20251208
  Receipt Date: 20251208
  Transmission Date: 20260117
  Serious: Yes (Hospitalization, Other)
  Sender: NOVO NORDISK
  Company Number: AU-SA-2025SA276006

PATIENT
  Sex: Male

DRUGS (5)
  1. LEVEMIR [Suspect]
     Active Substance: INSULIN DETEMIR
     Indication: Product used for unknown indication
     Dosage: UNK
  2. TOUJEO [Suspect]
     Active Substance: INSULIN GLARGINE
     Indication: Product used for unknown indication
     Dosage: STRENGTH: 300 IU/ML
  3. NOVORAPID [Suspect]
     Active Substance: INSULIN ASPART
     Indication: Product used for unknown indication
     Dosage: UNK
  4. LANTUS [Suspect]
     Active Substance: INSULIN GLARGINE
     Indication: Product used for unknown indication
     Dosage: STRENGTH: 100 IU/ML
  5. INSULIN GLARGINE [Suspect]
     Active Substance: INSULIN GLARGINE
     Indication: Product used for unknown indication
     Dosage: STRENGTH: 100 IU/ML

REACTIONS (16)
  - Anxiety [Unknown]
  - Retinopathy [Unknown]
  - Infection [Unknown]
  - Mental disorder [Unknown]
  - Mental impairment [Unknown]
  - Diabetic neuropathy [Unknown]
  - Hypoglycaemia [Unknown]
  - Diabetic ketoacidosis [Unknown]
  - Paraesthesia [Unknown]
  - Product use issue [Unknown]
  - Renal disorder [Unknown]
  - Thyroid disorder [Unknown]
  - Urine analysis abnormal [Unknown]
  - Cardiovascular disorder [Unknown]
  - Hypoaesthesia [Unknown]
  - Visual impairment [Unknown]
